FAERS Safety Report 20058434 (Version 1)
Quarter: 2021Q4

REPORT INFORMATION
  Report Type: Spontaneous
  Country: CN (occurrence: CN)
  Receive Date: 20211111
  Receipt Date: 20211111
  Transmission Date: 20220303
  Serious: Yes (Hospitalization, Other)
  Sender: FDA-Public Use
  Company Number: CN-PFIZER INC-202101484337

PATIENT
  Age: 40 Year
  Sex: Female
  Weight: 70.5 kg

DRUGS (1)
  1. LIPITOR [Suspect]
     Active Substance: ATORVASTATIN CALCIUM
     Indication: Dyslipidaemia
     Dosage: 120 MG, 1X/DAY
     Route: 048
     Dates: start: 20211013, end: 20211026

REACTIONS (11)
  - Hyperkalaemia [Recovering/Resolving]
  - Blood creatine phosphokinase increased [Recovering/Resolving]
  - Myalgia [Recovering/Resolving]
  - Muscular weakness [Recovering/Resolving]
  - Rhabdomyolysis [Unknown]
  - Electrolyte imbalance [Unknown]
  - Cerebrovascular accident [Unknown]
  - Nephrogenic anaemia [Unknown]
  - Chronic kidney disease-mineral and bone disorder [Unknown]
  - Arteriovenous fistula site complication [Unknown]
  - Arteriovenous fistula thrombosis [Unknown]

NARRATIVE: CASE EVENT DATE: 20211025
